FAERS Safety Report 6840015-7 (Version None)
Quarter: 2010Q3

REPORT INFORMATION
  Report Type: 
  Country: None (occurrence: None)
  Receive Date: 20100714
  Receipt Date: 20100707
  Transmission Date: 20110219
  Serious: Yes (Hospitalization)
  Sender: FDA-Public Use
  Company Number: FR-ROCHE-713511

PATIENT
  Age: 62 Year
  Sex: Male
  Weight: 75 kg

DRUGS (3)
  1. PEGASYS [Suspect]
     Route: 058
     Dates: start: 20090905
  2. COPEGUS [Suspect]
     Route: 048
     Dates: start: 20090905
  3. METHADONE HCL [Concomitant]
     Indication: THERAPEUTIC PROCEDURE

REACTIONS (2)
  - ANAEMIA [None]
  - INTERSTITIAL LUNG DISEASE [None]
